FAERS Safety Report 11435927 (Version 1)
Quarter: 2015Q3

REPORT INFORMATION
  Report Type: Spontaneous
  Country: US (occurrence: US)
  Receive Date: 20150821
  Receipt Date: 20150821
  Transmission Date: 20151125
  Serious: No
  Sender: FDA-Public Use
  Company Number: US-ELI_LILLY_AND_COMPANY-US201401011974

PATIENT
  Sex: Male

DRUGS (4)
  1. WELLBUTRIN [Concomitant]
     Active Substance: BUPROPION HYDROCHLORIDE
     Dosage: 1 DF, UNKNOWN
  2. CIALIS [Suspect]
     Active Substance: TADALAFIL
     Indication: ANORGASMIA
     Dosage: 5 MG, PRN
     Route: 065
     Dates: start: 2010
  3. LISINOPRIL. [Concomitant]
     Active Substance: LISINOPRIL
     Dosage: 1 DF, UNKNOWN
  4. CIALIS [Suspect]
     Active Substance: TADALAFIL
     Dosage: 10 MG, PRN
     Route: 065
     Dates: start: 2010

REACTIONS (4)
  - Somnolence [Unknown]
  - Expired product administered [Unknown]
  - Confusional state [Unknown]
  - Off label use [Unknown]
